FAERS Safety Report 10010346 (Version 2)
Quarter: 2014Q1

REPORT INFORMATION
  Report Type: Report from Study
  Country: US (occurrence: US)
  Receive Date: 20140314
  Receipt Date: 20140314
  Transmission Date: 20141002
  Serious: Yes (Hospitalization, Other)
  Sender: FDA-Public Use
  Company Number: US-ROCHE-1358969

PATIENT
  Sex: Male

DRUGS (15)
  1. LUCENTIS [Suspect]
     Indication: MACULAR DEGENERATION
     Dosage: LEFT
     Route: 065
     Dates: start: 201310
  2. NORPACE [Concomitant]
     Indication: VENTRICULAR TACHYCARDIA
     Dosage: 2 TABS TWICE A DAY AND 1 AT BEDTIME
     Route: 048
  3. METOPROLOL TARTRATE [Concomitant]
     Dosage: 1 TAB TWICE A DAY
     Route: 065
  4. LISINOPRIL [Concomitant]
     Route: 048
  5. ATORVASTATIN [Concomitant]
     Route: 065
  6. ALLOPURINOL [Concomitant]
     Indication: NEPHROLITHIASIS
     Dosage: 2 TABS ONCE DAILY
     Route: 048
  7. HUMALOG [Concomitant]
     Indication: DIABETES MELLITUS
  8. NITROGLYCERIN [Concomitant]
     Route: 060
  9. OMEPRAZOLE [Concomitant]
     Route: 065
  10. ASPIRIN [Concomitant]
     Route: 065
  11. KLOR-CON [Concomitant]
     Route: 065
  12. FUROSEMIDE [Concomitant]
     Dosage: TAKES 1.5 PILL DAILY
     Route: 065
  13. SYNTHROID [Concomitant]
     Route: 048
  14. MUPIROCIN [Concomitant]
     Dosage: APPLY TO EACH NOSTRIL WITH A QTIP
     Route: 045
  15. LANTUS [Concomitant]

REACTIONS (5)
  - Intestinal obstruction [Unknown]
  - Arterial occlusive disease [Unknown]
  - Renal impairment [Unknown]
  - Coronary artery occlusion [Unknown]
  - Hearing impaired [Unknown]
